FAERS Safety Report 7955631-9 (Version None)
Quarter: 2011Q4

REPORT INFORMATION
  Report Type: 
  Country: None (occurrence: None)
  Receive Date: 20111203
  Receipt Date: 20111129
  Transmission Date: 20120403
  Serious: Yes (Death, Life-Threatening, Hospitalization)
  Sender: FDA-Public Use
  Company Number: US-AMGEN-USACT2011062701

PATIENT
  Age: 36 Year
  Sex: Male
  Weight: 92.6 kg

DRUGS (25)
  1. GEMCITABINE [Concomitant]
     Dosage: UNK
     Dates: start: 20111110
  2. PROCHLORPERAZINE [Concomitant]
     Indication: NAUSEA
     Dosage: 10 MG, UNK
     Route: 048
     Dates: start: 20110823
  3. ONDANSETRON [Concomitant]
     Indication: PROPHYLAXIS
     Dosage: UNK UNK, UNK
     Dates: start: 20110823, end: 20111024
  4. DULCOLAX [Concomitant]
     Indication: CONSTIPATION
     Dosage: 5 MG, UNK
     Route: 048
     Dates: start: 20111007
  5. LACTULOSE [Concomitant]
     Indication: CONSTIPATION
     Dosage: 20 G, UNK
     Route: 048
     Dates: start: 20111007, end: 20111007
  6. NEXIUM [Concomitant]
     Indication: DYSPEPSIA
     Dosage: 40 MG, UNK
     Route: 048
     Dates: start: 20111007, end: 20111024
  7. DENOSUMAB [Suspect]
     Indication: HYPERCALCAEMIA OF MALIGNANCY
     Dosage: 1.7 ML, UNK
     Dates: start: 20111025, end: 20111108
  8. LEUCOVORIN CALCIUM [Concomitant]
     Dosage: UNK
     Dates: start: 20110823
  9. MEGACE [Concomitant]
     Indication: DECREASED APPETITE
     Dosage: 40 MG, UNK
     Route: 048
     Dates: start: 20111110
  10. ERGOCALCIFEROL [Concomitant]
     Indication: VITAMIN D DEFICIENCY
     Dosage: 50000 IU, UNK
     Route: 048
     Dates: start: 20110928
  11. MIRALAX [Concomitant]
     Indication: CONSTIPATION
     Dosage: 17 G, UNK
     Route: 048
     Dates: start: 20111007
  12. DEXAMETHASONE [Concomitant]
     Indication: PROPHYLAXIS
     Dosage: 10 MG, UNK
     Route: 042
     Dates: start: 20110823
  13. MULTI-VITAMINS [Concomitant]
     Indication: SUPPLEMENTATION THERAPY
     Dosage: 1 UNK, UNK
     Route: 048
     Dates: start: 20110915
  14. SODIUM CHLORIDE [Concomitant]
     Indication: HYPERCALCAEMIA OF MALIGNANCY
     Dosage: 1000 ML, UNK
     Route: 042
     Dates: start: 20111017
  15. MORPHINE [Concomitant]
     Indication: PAIN
     Dosage: 15 MG, UNK
     Route: 048
     Dates: start: 20110823
  16. NEUTRA PHOS K [Concomitant]
     Indication: HYPOPHOSPHATAEMIA
     Dosage: 2 UNK, UNK
     Route: 048
     Dates: start: 20111007, end: 20111007
  17. HEPARIN LOCK-FLUSH [Concomitant]
     Indication: CENTRAL VENOUS CATHETERISATION
     Dosage: 200 UNK, UNK
     Route: 042
     Dates: start: 20110823
  18. ONDANSETRON [Concomitant]
     Indication: NAUSEA
  19. ACETAMINOPHEN [Concomitant]
     Indication: PYREXIA
     Dosage: 325 MG, UNK
     Route: 048
     Dates: start: 20111028
  20. HERBALIFE PRODUCTS [Concomitant]
     Indication: SUPPLEMENTATION THERAPY
     Dosage: 1 UNK, UNK
     Route: 048
     Dates: start: 20110915
  21. ZOMETA [Concomitant]
     Indication: HYPERCALCAEMIA OF MALIGNANCY
     Dosage: 4 MG, UNK
     Route: 042
     Dates: start: 20110920, end: 20111013
  22. OXALIPLATIN [Concomitant]
     Dosage: UNK
     Dates: start: 20110823
  23. FLUOROURACIL [Concomitant]
     Dosage: UNK
     Dates: start: 20110823
  24. POTASSIUM CHLORIDE [Concomitant]
     Indication: HYPOKALAEMIA
     Dosage: 40 MUG, UNK
     Route: 042
     Dates: start: 20111006, end: 20111006
  25. METOPROLOL TARTRATE [Concomitant]
     Indication: HYPERTENSION
     Dosage: 25 MG, UNK
     Route: 048
     Dates: start: 20110715

REACTIONS (1)
  - DEATH [None]
